FAERS Safety Report 5347951-1 (Version None)
Quarter: 2007Q2

REPORT INFORMATION
  Report Type: 
  Country: None (occurrence: None)
  Receive Date: 20070606
  Receipt Date: 20070525
  Transmission Date: 20071010
  Serious: Yes (Life-Threatening, Hospitalization, Other)
  Sender: FDA-Public Use
  Company Number: AU-AVENTIS-200714765GDDC

PATIENT
  Age: 81 Year
  Sex: Male

DRUGS (9)
  1. LANTUS [Suspect]
     Route: 058
     Dates: start: 20060111
  2. AUTOPEN INSULIN INJECTION PEN [Suspect]
  3. NOVORAPID [Concomitant]
     Dosage: DOSE: UNK
  4. DIAMICRON [Concomitant]
     Dosage: DOSE: UNK
  5. TRITACE [Concomitant]
     Dosage: DOSE: UNK
  6. PRAMIN                             /00041901/ [Concomitant]
     Dosage: DOSE: UNK
  7. DEXAMETHASONE 0.5MG TAB [Concomitant]
     Dosage: DOSE: UNK
  8. DILANTIN [Concomitant]
     Dosage: DOSE: UNK
  9. VYTORIN [Concomitant]
     Dosage: DOSE: UNK

REACTIONS (2)
  - BLOOD GLUCOSE INCREASED [None]
  - MALIGNANT MELANOMA [None]
